FAERS Safety Report 11331552 (Version 2)
Quarter: 2015Q4

REPORT INFORMATION
  Report Type: Spontaneous
  Country: US (occurrence: US)
  Receive Date: 20150803
  Receipt Date: 20151014
  Transmission Date: 20160304
  Serious: Yes (Hospitalization, Other)
  Sender: FDA-Public Use
  Company Number: US-ELI_LILLY_AND_COMPANY-US201507010898

PATIENT
  Age: 51 Year
  Sex: Male
  Weight: 80.73 kg

DRUGS (8)
  1. ANDROGEL [Suspect]
     Active Substance: TESTOSTERONE
     Indication: SEXUAL DYSFUNCTION
  2. AXIRON [Suspect]
     Active Substance: TESTOSTERONE
     Indication: BLOOD TESTOSTERONE DECREASED
     Dosage: UNK UNK, QD
     Route: 062
     Dates: start: 2013, end: 201312
  3. AXIRON [Suspect]
     Active Substance: TESTOSTERONE
     Indication: BLOOD TESTOSTERONE DECREASED
  4. ANDROGEL [Suspect]
     Active Substance: TESTOSTERONE
     Indication: BLOOD TESTOSTERONE DECREASED
     Dosage: UNK UNK, QD
     Route: 065
     Dates: end: 2013
  5. AXIRON [Suspect]
     Active Substance: TESTOSTERONE
     Indication: SEXUAL DYSFUNCTION
  6. ANDROGEL [Suspect]
     Active Substance: TESTOSTERONE
     Indication: BLOOD TESTOSTERONE DECREASED
  7. ANDROGEL [Suspect]
     Active Substance: TESTOSTERONE
     Indication: ASTHENIA
  8. AXIRON [Suspect]
     Active Substance: TESTOSTERONE
     Indication: ASTHENIA

REACTIONS (5)
  - Arterial occlusive disease [Not Recovered/Not Resolved]
  - Angiopathy [Not Recovered/Not Resolved]
  - Peripheral arterial occlusive disease [Not Recovered/Not Resolved]
  - Peripheral vascular disorder [Not Recovered/Not Resolved]
  - Device occlusion [Not Recovered/Not Resolved]

NARRATIVE: CASE EVENT DATE: 20131104
